FAERS Safety Report 8431108-1 (Version None)
Quarter: 2012Q2

REPORT INFORMATION
  Report Type: 
  Country: None (occurrence: None)
  Receive Date: 20120612
  Receipt Date: 20120607
  Transmission Date: 20120825
  Serious: Yes (Other)
  Sender: FDA-Public Use
  Company Number: IT-ABBOTT-11P-083-0837658-00

PATIENT
  Age: 6 Year
  Sex: Female

DRUGS (4)
  1. LEVETIRACETAM [Suspect]
     Indication: EPILEPSY
     Dosage: 500 MG DAILY
     Route: 048
     Dates: start: 20110701
  2. ALL OTHER THERAPEUTIC PRODUCTS [Concomitant]
     Indication: PRODUCT USED FOR UNKNOWN INDICATION
  3. LAMOTRIGINE [Suspect]
     Indication: EPILEPSY
     Dosage: 50 MG DAILY
     Route: 048
     Dates: start: 20110625, end: 20110706
  4. VALPROATE SODIUM [Suspect]
     Indication: EPILEPSY
     Route: 048
     Dates: start: 20090301

REACTIONS (3)
  - HYPERPYREXIA [None]
  - RASH GENERALISED [None]
  - FACE OEDEMA [None]
